FAERS Safety Report 4506964-X (Version None)
Quarter: 2004Q4

REPORT INFORMATION
  Report Type: 
  Country: None (occurrence: None)
  Receive Date: 20041117
  Receipt Date: 20041102
  Transmission Date: 20050328
  Serious: Yes (Hospitalization)
  Sender: FDA-Public Use
  Company Number: 430002E04GBR

PATIENT
  Age: 61 Year
  Sex: Male

DRUGS (4)
  1. NOVANTRONE [Suspect]
     Indication: FOLLICLE CENTRE LYMPHOMA, FOLLICULAR GRADE I, II, III
     Dosage: SEE IMAGE
     Dates: start: 20040920
  2. NOVANTRONE [Suspect]
     Indication: FOLLICLE CENTRE LYMPHOMA, FOLLICULAR GRADE I, II, III
     Dosage: SEE IMAGE
     Dates: start: 20041026
  3. DEXAMETHASONE [Suspect]
  4. FLUDARABINE PHOSPHATE [Suspect]

REACTIONS (1)
  - HAEMOGLOBIN DECREASED [None]
